FAERS Safety Report 7960218-8 (Version None)
Quarter: 2011Q4

REPORT INFORMATION
  Report Type: 
  Country: None (occurrence: None)
  Receive Date: 20111206
  Receipt Date: 20111205
  Transmission Date: 20120403
  Serious: Yes (Other)
  Sender: FDA-Public Use
  Company Number: US-PFIZER INC-2011296791

PATIENT
  Sex: Female

DRUGS (2)
  1. EFFEXOR [Suspect]
     Dosage: 75 MG, UNK
  2. EFFEXOR [Suspect]
     Dosage: 150 MG, UNK

REACTIONS (2)
  - VISUAL ACUITY REDUCED [None]
  - HALLUCINATION [None]
